FAERS Safety Report 4560403-1 (Version None)
Quarter: 2005Q1

REPORT INFORMATION
  Report Type: 
  Country: None (occurrence: None)
  Receive Date: 20050125
  Receipt Date: 20050114
  Transmission Date: 20050727
  Serious: Yes (Other)
  Sender: FDA-Public Use
  Company Number: JP-ROCHE-393023

PATIENT
  Age: 88 Year
  Sex: Male

DRUGS (5)
  1. TAMIFLU [Suspect]
     Indication: INFLUENZA
     Route: 048
     Dates: start: 20050107, end: 20050111
  2. AMLODIN [Concomitant]
     Route: 048
  3. CEROCRAL [Concomitant]
  4. ADALAT [Concomitant]
     Route: 048
  5. PANALDINE [Concomitant]
     Route: 048

REACTIONS (1)
  - MELAENA [None]
